FAERS Safety Report 9768493 (Version 1)
Quarter: 2013Q4

REPORT INFORMATION
  Report Type: Spontaneous
  Country: DE (occurrence: FR)
  Receive Date: 20131217
  Receipt Date: 20131217
  Transmission Date: 20140711
  Serious: Yes (Death, Hospitalization)
  Sender: FDA-Public Use
  Company Number: US-MERZ PHARMACEUTICALS, LLC DRUG SAFETY-13MRZ-00253

PATIENT
  Sex: Male

DRUGS (2)
  1. XEOMIN [Suspect]
     Indication: DYSPHAGIA
  2. XEOMIN [Suspect]
     Indication: OESOPHAGEAL SPASM

REACTIONS (5)
  - Aortic aneurysm rupture [None]
  - Mycotic aneurysm [None]
  - Mediastinitis [None]
  - Paraoesophageal abscess [None]
  - Off label use [Unknown]
